FAERS Safety Report 8029457-4 (Version None)
Quarter: 2012Q1

REPORT INFORMATION
  Report Type: 
  Country: None (occurrence: None)
  Receive Date: 20120108
  Receipt Date: 20111111
  Transmission Date: 20120608
  Serious: Yes (Hospitalization)
  Sender: FDA-Public Use
  Company Number: PHHY2011US104572

PATIENT
  Age: 74 Year
  Sex: Male
  Weight: 89 kg

DRUGS (14)
  1. PREDNISONE TAB [Suspect]
     Dosage: 10 MG DAILY
     Route: 048
     Dates: start: 20111109
  2. PHYSIOTENS [Concomitant]
     Indication: HYPERTENSION
     Dosage: 0.3 MG,
     Route: 048
     Dates: start: 19950101
  3. ZOMETA [Suspect]
     Indication: METASTASES TO BONE
     Dosage: 4 MG, EVERY 4 WEEKS
     Route: 042
     Dates: start: 20100401
  4. LENALIDOMIDE [Suspect]
     Dosage: 25 MG,
     Dates: start: 20111109
  5. DOCETAXEL [Suspect]
     Indication: PROSTATE CANCER
     Dosage: 150 MG
     Dates: start: 20110323
  6. SELEN [Concomitant]
     Indication: MEDICAL DIET
     Dosage: 1 U,
     Route: 048
     Dates: start: 20000101
  7. LENALIDOMIDE [Suspect]
     Indication: PROSTATE CANCER
     Dosage: 25 MG,
     Dates: start: 20110323
  8. ELIGARD [Concomitant]
     Indication: PROSTATE CANCER
     Dosage: 22.5 MG, EVERY 3 MONTHS
     Route: 048
     Dates: start: 20100622
  9. DICLOFENAC SODIUM [Concomitant]
     Indication: PAIN
     Dosage: 1 TAB
     Route: 048
     Dates: start: 20111010
  10. DOCETAXEL [Suspect]
     Dosage: 149 MG, 1 IN 3 WEEK
     Route: 042
     Dates: start: 20111109
  11. RAMIPRIL [Concomitant]
     Indication: HYPERTENSION
     Dosage: 5 MG, 0-0-1
     Route: 048
     Dates: start: 20090601
  12. NOVALGIN [Concomitant]
     Indication: PAIN
     Dosage: 30 GTT
     Route: 048
     Dates: start: 20111010
  13. BLOOD AND RELATED PRODUCTS [Concomitant]
     Indication: ANAEMIA
     Dosage: 2 U
     Route: 042
     Dates: start: 20111021, end: 20111021
  14. PREDNISONE TAB [Suspect]
     Indication: PROSTATE CANCER
     Dosage: 10 MG DAILY
     Route: 048
     Dates: start: 20110323

REACTIONS (5)
  - LYMPHADENOPATHY [None]
  - PAIN IN JAW [None]
  - ABSCESS JAW [None]
  - CONNECTIVE TISSUE INFLAMMATION [None]
  - OSTEOSARCOMA METASTATIC [None]
